FAERS Safety Report 20745893 (Version 1)
Quarter: 2022Q2

REPORT INFORMATION
  Report Type: Spontaneous
  Country: RU (occurrence: RU)
  Receive Date: 20220425
  Receipt Date: 20220425
  Transmission Date: 20220720
  Serious: Yes (Hospitalization)
  Sender: FDA-Public Use
  Company Number: RU-AMERICAN REGENT INC-2022001114

PATIENT
  Age: 66 Year
  Sex: Female
  Weight: 80 kg

DRUGS (1)
  1. VENOFER [Suspect]
     Active Substance: IRON SUCROSE
     Indication: Iron deficiency anaemia
     Dosage: 20MG/ 5ML (100MG) (100 MG,1 IN 1 TOTAL)
     Route: 042
     Dates: start: 20190930, end: 20190930

REACTIONS (1)
  - Urticaria [Recovering/Resolving]

NARRATIVE: CASE EVENT DATE: 20190930
